FAERS Safety Report 7596337-8 (Version None)
Quarter: 2011Q3

REPORT INFORMATION
  Report Type: 
  Country: None (occurrence: None)
  Receive Date: 20110707
  Receipt Date: 20110629
  Transmission Date: 20111222
  Serious: Yes (Death)
  Sender: FDA-Public Use
  Company Number: AU-BAXTER-2011BH021467

PATIENT
  Age: 1 Year

DRUGS (1)
  1. SEVOFLURANE [Suspect]
     Indication: GENERAL ANAESTHESIA
     Route: 065

REACTIONS (1)
  - CARDIAC ARREST [None]
